FAERS Safety Report 4275060-1 (Version None)
Quarter: 2004Q1

REPORT INFORMATION
  Report Type: 
  Country: None (occurrence: None)
  Receive Date: 20040116
  Receipt Date: 20031210
  Transmission Date: 20041129
  Serious: Yes (Disabling)
  Sender: FDA-Public Use
  Company Number: FR-JNJFOC-20031103237

PATIENT
  Age: 21 Year
  Sex: Female

DRUGS (2)
  1. REMICADE [Suspect]
     Indication: ANKYLOSING SPONDYLITIS
     Dosage: 345 MG, 1 IN 1 DAY, INTRAVENOUS
     Route: 042
     Dates: start: 20031016, end: 20031016
  2. REMICADE [Suspect]
     Indication: ANKYLOSING SPONDYLITIS
     Dosage: 345 MG, 1 IN 1 DAY, INTRAVENOUS
     Route: 042
     Dates: start: 20031029, end: 20031029

REACTIONS (5)
  - CHILLS [None]
  - FLUSHING [None]
  - HYPERHIDROSIS [None]
  - MALAISE [None]
  - POLYARTHRITIS [None]
